FAERS Safety Report 12621955 (Version 1)
Quarter: 2016Q3

REPORT INFORMATION
  Report Type: Spontaneous
  Country: US (occurrence: None)
  Receive Date: 20160803
  Receipt Date: 20160803
  Transmission Date: 20161109
  Serious: Yes (Death)
  Sender: FDA-Public Use
  Company Number: None

PATIENT
  Age: 77 Year
  Sex: Male
  Weight: 80.6 kg

DRUGS (1)
  1. WARFARIN [Suspect]
     Active Substance: WARFARIN
     Indication: ATRIAL FIBRILLATION
     Route: 048

REACTIONS (5)
  - Hemiparesis [None]
  - Abasia [None]
  - Aspiration [None]
  - Basal ganglia haemorrhage [None]
  - Pneumonia [None]

NARRATIVE: CASE EVENT DATE: 20150425
